FAERS Safety Report 6449452-6 (Version None)
Quarter: 2009Q4

REPORT INFORMATION
  Report Type: 
  Country: None (occurrence: None)
  Receive Date: 20091120
  Receipt Date: 20091112
  Transmission Date: 20100525
  Serious: Yes (Other)
  Sender: FDA-Public Use
  Company Number: PHEH2007US15444

PATIENT
  Sex: Female

DRUGS (7)
  1. ZOMETA [Suspect]
     Dosage: 4MG, MONTHLY
  2. CHEMOTHERAPEUTICS NOS [Concomitant]
  3. RADIATION THERAPY [Concomitant]
  4. HERCEPTIN [Concomitant]
  5. PROCRIT                            /00909301/ [Concomitant]
  6. KYTRIL [Concomitant]
  7. TAXOTERE [Concomitant]
     Dosage: WEEKLY

REACTIONS (18)
  - ANAEMIA [None]
  - ANHEDONIA [None]
  - ANXIETY [None]
  - ARTHRALGIA [None]
  - DEVICE RELATED INFECTION [None]
  - ENDODONTIC PROCEDURE [None]
  - GAIT DISTURBANCE [None]
  - HYPOTHYROIDISM [None]
  - INJURY [None]
  - INSOMNIA [None]
  - NECK PAIN [None]
  - OSTEOARTHRITIS [None]
  - OSTEONECROSIS [None]
  - PAIN [None]
  - PAIN IN EXTREMITY [None]
  - PULMONARY CONGESTION [None]
  - SCOLIOSIS [None]
  - TOOTHACHE [None]
